FAERS Safety Report 11751817 (Version 2)
Quarter: 2017Q1

REPORT INFORMATION
  Report Type: Report from Study
  Country: None (occurrence: DO)
  Receive Date: 20151118
  Receipt Date: 20170106
  Transmission Date: 20170428
  Serious: Yes (Other)
  Sender: FDA-Public Use
  Company Number: DO-ABBVIE-15K-279-1488911-00

PATIENT
  Age: 50 Year
  Sex: Female

DRUGS (2)
  1. HUMIRA [Suspect]
     Active Substance: ADALIMUMAB
     Indication: RHEUMATOID ARTHRITIS
     Route: 058
     Dates: start: 2014, end: 20151012
  2. HUMIRA [Suspect]
     Active Substance: ADALIMUMAB
     Route: 058

REACTIONS (9)
  - Decreased appetite [Not Recovered/Not Resolved]
  - Flatulence [Unknown]
  - Procedural pain [Unknown]
  - Insomnia [Unknown]
  - Incision site oedema [Recovering/Resolving]
  - Nausea [Not Recovered/Not Resolved]
  - Incision site pain [Recovering/Resolving]
  - Abdominal hernia [Unknown]
  - Pyrexia [Unknown]

NARRATIVE: CASE EVENT DATE: 20151112
